FAERS Safety Report 5935974-0 (Version None)
Quarter: 2008Q4

REPORT INFORMATION
  Report Type: 
  Country: None (occurrence: None)
  Receive Date: 20081030
  Receipt Date: 20081021
  Transmission Date: 20090506
  Serious: Yes (Hospitalization)
  Sender: FDA-Public Use
  Company Number: US-MERCK-0706USA00831

PATIENT
  Age: 54 Year
  Sex: Female
  Weight: 82 kg

DRUGS (5)
  1. FOSAMAX [Suspect]
     Indication: OSTEOPOROSIS
     Route: 048
     Dates: start: 19970101, end: 20051201
  2. FOSAMAX [Suspect]
     Route: 048
     Dates: start: 20050810
  3. FOSAMAX [Suspect]
     Route: 048
     Dates: start: 20031107
  4. FOSAMAX PLUS D [Suspect]
     Route: 048
  5. BONIVA [Suspect]
     Indication: OSTEOPOROSIS
     Route: 048
     Dates: start: 20050101, end: 20061212

REACTIONS (42)
  - ABDOMINAL DISCOMFORT [None]
  - ABSCESS JAW [None]
  - ACNE [None]
  - ACTINOMYCOSIS [None]
  - ANOREXIA [None]
  - ANXIETY [None]
  - BLEPHARITIS [None]
  - BONE DISORDER [None]
  - CARBUNCLE [None]
  - CELLULITIS [None]
  - CHLAMYDIAL INFECTION [None]
  - DEPRESSION [None]
  - DERMATOSIS [None]
  - EXCORIATION [None]
  - FACTOR V DEFICIENCY [None]
  - FOLLICULITIS [None]
  - HAEMORRHAGE [None]
  - IMPETIGO [None]
  - INTERVERTEBRAL DISC PROTRUSION [None]
  - KLEBSIELLA SEPSIS [None]
  - LYMPHADENOPATHY [None]
  - MALAISE [None]
  - MENOPAUSE [None]
  - MENTAL DISORDER [None]
  - MIGRAINE [None]
  - MOUTH ULCERATION [None]
  - NEURALGIA [None]
  - NIGHT SWEATS [None]
  - OEDEMA PERIPHERAL [None]
  - ORAL DISORDER [None]
  - ORAL HERPES [None]
  - OSTEOMYELITIS [None]
  - OSTEONECROSIS [None]
  - OSTEOPENIA [None]
  - SPONDYLOLISTHESIS [None]
  - SUBMANDIBULAR MASS [None]
  - SWELLING [None]
  - THROMBOCYTOPENIA [None]
  - TOOTH ABSCESS [None]
  - VENOUS THROMBOSIS [None]
  - WEIGHT DECREASED [None]
  - WOUND INFECTION [None]
